FAERS Safety Report 24586583 (Version 1)
Quarter: 2024Q4

REPORT INFORMATION
  Report Type: Spontaneous
  Country: US (occurrence: US)
  Receive Date: 20241107
  Receipt Date: 20241107
  Transmission Date: 20250115
  Serious: No
  Sender: AMGEN
  Company Number: US-AMGEN-USASP2024218335

PATIENT
  Sex: Female

DRUGS (2)
  1. PROCYSBI [Suspect]
     Active Substance: CYSTEAMINE BITARTRATE
     Indication: Cystinosis
     Dosage: 1200 MILLIGRAM, Q12H (TAKE 1200 MG (16 X 75 MG CAPSULES) BY MOUTH EVERY 12 HOURS) (960/ 75 MG CAPSUL
     Route: 048
  2. PROCYSBI [Suspect]
     Active Substance: CYSTEAMINE BITARTRATE
     Dosage: 12 DOSAGE FORM, Q12H (TAKING 12 PILLS EVERY 12 HOURS)
     Route: 048

REACTIONS (2)
  - Intentional product misuse [Unknown]
  - Renal disorder [Unknown]
